FAERS Safety Report 5126888-7 (Version None)
Quarter: 2006Q4

REPORT INFORMATION
  Report Type: 
  Country: None (occurrence: None)
  Receive Date: 20061011
  Receipt Date: 20061011
  Transmission Date: 20070319
  Serious: Yes (Hospitalization)
  Sender: FDA-Public Use
  Company Number: None

PATIENT
  Sex: Male
  Weight: 130 kg

DRUGS (9)
  1. FLUDARABINE [Suspect]
     Indication: LEUKAEMIA
     Dosage: 72MG DAILY IV
     Route: 042
     Dates: start: 20060828, end: 20060828
  2. MELPHALAN [Suspect]
     Dosage: 336MG TIMES ONE IV
     Route: 042
     Dates: start: 20060829, end: 20060829
  3. CAMPATH [Concomitant]
  4. PREVACID [Concomitant]
  5. DIFLUCAN [Concomitant]
  6. VALTREX [Concomitant]
  7. PROGRAF [Concomitant]
  8. PRINIVOL [Concomitant]
  9. BACTIRM [Concomitant]

REACTIONS (11)
  - CHILLS [None]
  - CLOSTRIDIAL INFECTION [None]
  - DIARRHOEA [None]
  - EOSINOPHILIA [None]
  - GRAFT VERSUS HOST DISEASE [None]
  - INFECTION [None]
  - NAUSEA [None]
  - PYREXIA [None]
  - RASH [None]
  - STEM CELL TRANSPLANT [None]
  - VOMITING [None]
